FAERS Safety Report 7809302-X (Version None)
Quarter: 2011Q4

REPORT INFORMATION
  Report Type: 
  Country: None (occurrence: None)
  Receive Date: 20111006
  Receipt Date: 20110922
  Transmission Date: 20120403
  Serious: Yes (Death)
  Sender: FDA-Public Use
  Company Number: TCI2011A05100

PATIENT
  Age: 76 Year
  Sex: Male

DRUGS (6)
  1. ANGIOTENSIN II ANTAGONISTS [Concomitant]
  2. CALCIUM CHANNEL BLOCKERS [Concomitant]
  3. ACTOS [Suspect]
     Indication: TYPE 2 DIABETES MELLITUS
     Dosage: 15 MG (15 MG, 1 D) ORAL, 30 MG (30 MG) ORAL
     Route: 048
     Dates: start: 20090916
  4. ACTOS [Suspect]
     Indication: TYPE 2 DIABETES MELLITUS
     Dosage: 15 MG (15 MG, 1 D) ORAL, 30 MG (30 MG) ORAL
     Route: 048
     Dates: end: 20110824
  5. ORAL ANTIDIABETICS [Concomitant]
  6. HMG COA REDUCTASE INHIBITORS [Concomitant]

REACTIONS (2)
  - ACUTE MYOCARDIAL INFARCTION [None]
  - FALL [None]
